FAERS Safety Report 8857524 (Version 1)
Quarter: 2012Q4

REPORT INFORMATION
  Report Type: 
  Country: US (occurrence: US)
  Receive Date: 20121024
  Receipt Date: 20121024
  Transmission Date: 20130627
  Serious: Yes (Death)
  Sender: FDA-Public Use
  Company Number: US-GLAXOSMITHKLINE-A0998188A

PATIENT
  Age: 58 Year
  Sex: Female

DRUGS (8)
  1. POTIGA [Suspect]
     Indication: EPILEPSY
     Dosage: 200MG Three times per day
     Route: 048
     Dates: start: 20120920
  2. LAMOTRIGINE [Suspect]
     Indication: EPILEPSY
     Dosage: 200MG Twice per day
     Route: 048
  3. LEVETIRACETAM [Concomitant]
  4. VIMPAT [Concomitant]
  5. BENAZAPRIL [Concomitant]
  6. LEVOTHYROXINE [Concomitant]
  7. ATIVAN [Concomitant]
  8. CARBAMAZEPINE ER [Concomitant]

REACTIONS (1)
  - Epilepsy [Fatal]
